FAERS Safety Report 14252006 (Version 1)
Quarter: 2017Q4

REPORT INFORMATION
  Report Type: Report from Study
  Country: None (occurrence: AT)
  Receive Date: 20171205
  Receipt Date: 20171205
  Transmission Date: 20180321
  Serious: Yes (Death)
  Sender: FDA-Public Use
  Company Number: AT-ABBVIE-17K-009-2183504-00

PATIENT
  Age: 77 Year
  Sex: Female

DRUGS (1)
  1. DUODOPA [Suspect]
     Active Substance: CARBIDOPA\LEVODOPA
     Indication: PARKINSON^S DISEASE
     Dosage: 16 H THERAPY: ??MD: 7ML??CR DAYTIME: 2.7ML/H??ED: 1.2ML
     Route: 050
     Dates: start: 20100727

REACTIONS (1)
  - Death [Fatal]

NARRATIVE: CASE EVENT DATE: 20171202
